FAERS Safety Report 25435653 (Version 1)
Quarter: 2025Q2

REPORT INFORMATION
  Report Type: Spontaneous
  Country: IT (occurrence: IT)
  Receive Date: 20250613
  Receipt Date: 20250613
  Transmission Date: 20250716
  Serious: Yes (Life-Threatening)
  Sender: MYLAN
  Company Number: None

PATIENT
  Age: 73 Year
  Sex: Male
  Weight: 63 kg

DRUGS (44)
  1. ARIXTRA [Suspect]
     Active Substance: FONDAPARINUX SODIUM
     Indication: Atrial fibrillation
     Dosage: 5 MILLIGRAM, QD (24 HR)
     Dates: start: 20250118, end: 20250131
  2. ARIXTRA [Suspect]
     Active Substance: FONDAPARINUX SODIUM
     Indication: Thrombosis prophylaxis
     Dosage: 5 MILLIGRAM, QD (24 HR)
     Route: 058
     Dates: start: 20250118, end: 20250131
  3. ARIXTRA [Suspect]
     Active Substance: FONDAPARINUX SODIUM
     Dosage: 5 MILLIGRAM, QD (24 HR)
     Route: 058
     Dates: start: 20250118, end: 20250131
  4. ARIXTRA [Suspect]
     Active Substance: FONDAPARINUX SODIUM
     Dosage: 5 MILLIGRAM, QD (24 HR)
     Dates: start: 20250118, end: 20250131
  5. OLMESARTAN MEDOXOMIL [Concomitant]
     Active Substance: OLMESARTAN MEDOXOMIL
     Indication: Hypertension
     Dosage: 20 MILLIGRAM, QD
  6. OLMESARTAN MEDOXOMIL [Concomitant]
     Active Substance: OLMESARTAN MEDOXOMIL
     Dosage: 20 MILLIGRAM, QD
     Route: 048
  7. OLMESARTAN MEDOXOMIL [Concomitant]
     Active Substance: OLMESARTAN MEDOXOMIL
     Dosage: 20 MILLIGRAM, QD
     Route: 048
  8. OLMESARTAN MEDOXOMIL [Concomitant]
     Active Substance: OLMESARTAN MEDOXOMIL
     Dosage: 20 MILLIGRAM, QD
  9. DOXAZOSIN MESYLATE [Concomitant]
     Active Substance: DOXAZOSIN MESYLATE
     Indication: Hypertension
  10. DOXAZOSIN MESYLATE [Concomitant]
     Active Substance: DOXAZOSIN MESYLATE
     Route: 048
  11. DOXAZOSIN MESYLATE [Concomitant]
     Active Substance: DOXAZOSIN MESYLATE
     Route: 048
  12. DOXAZOSIN MESYLATE [Concomitant]
     Active Substance: DOXAZOSIN MESYLATE
  13. Cefepima qilu [Concomitant]
     Indication: Infection
     Dosage: 2 GRAM, Q6H (X 4)
     Dates: start: 20250121, end: 20250214
  14. Cefepima qilu [Concomitant]
     Dosage: 2 GRAM, Q6H (X 4)
     Route: 042
     Dates: start: 20250121, end: 20250214
  15. Cefepima qilu [Concomitant]
     Dosage: 2 GRAM, Q6H (X 4)
     Route: 042
     Dates: start: 20250121, end: 20250214
  16. Cefepima qilu [Concomitant]
     Dosage: 2 GRAM, Q6H (X 4)
     Dates: start: 20250121, end: 20250214
  17. KETOPROFEN [Concomitant]
     Active Substance: KETOPROFEN
     Indication: Pain
     Dates: start: 20250115, end: 20250228
  18. KETOPROFEN [Concomitant]
     Active Substance: KETOPROFEN
     Route: 042
     Dates: start: 20250115, end: 20250228
  19. KETOPROFEN [Concomitant]
     Active Substance: KETOPROFEN
     Route: 042
     Dates: start: 20250115, end: 20250228
  20. KETOPROFEN [Concomitant]
     Active Substance: KETOPROFEN
     Dates: start: 20250115, end: 20250228
  21. PANTOPRAZOLE [Concomitant]
     Active Substance: PANTOPRAZOLE
     Indication: Prophylaxis against gastrointestinal ulcer
  22. PANTOPRAZOLE [Concomitant]
     Active Substance: PANTOPRAZOLE
     Route: 042
  23. PANTOPRAZOLE [Concomitant]
     Active Substance: PANTOPRAZOLE
     Route: 042
  24. PANTOPRAZOLE [Concomitant]
     Active Substance: PANTOPRAZOLE
  25. ACETAMINOPHEN [Concomitant]
     Active Substance: ACETAMINOPHEN
     Indication: Pain
     Dosage: 3 GRAM, QD (24 HR)
     Dates: start: 20250114, end: 20250128
  26. ACETAMINOPHEN [Concomitant]
     Active Substance: ACETAMINOPHEN
     Dosage: 3 GRAM, QD (24 HR)
     Route: 042
     Dates: start: 20250114, end: 20250128
  27. ACETAMINOPHEN [Concomitant]
     Active Substance: ACETAMINOPHEN
     Dosage: 3 GRAM, QD (24 HR)
     Route: 042
     Dates: start: 20250114, end: 20250128
  28. ACETAMINOPHEN [Concomitant]
     Active Substance: ACETAMINOPHEN
     Dosage: 3 GRAM, QD (24 HR)
     Dates: start: 20250114, end: 20250128
  29. EZETIMIBE\ROSUVASTATIN CALCIUM [Concomitant]
     Active Substance: EZETIMIBE\ROSUVASTATIN CALCIUM
     Indication: Dyslipidaemia
     Dosage: 10 + 10 MG QD
     Dates: start: 20240101
  30. EZETIMIBE\ROSUVASTATIN CALCIUM [Concomitant]
     Active Substance: EZETIMIBE\ROSUVASTATIN CALCIUM
     Dosage: 10 + 10 MG QD
     Route: 048
     Dates: start: 20240101
  31. EZETIMIBE\ROSUVASTATIN CALCIUM [Concomitant]
     Active Substance: EZETIMIBE\ROSUVASTATIN CALCIUM
     Dosage: 10 + 10 MG QD
     Route: 048
     Dates: start: 20240101
  32. EZETIMIBE\ROSUVASTATIN CALCIUM [Concomitant]
     Active Substance: EZETIMIBE\ROSUVASTATIN CALCIUM
     Dosage: 10 + 10 MG QD
     Dates: start: 20240101
  33. BARNIDIPINE [Concomitant]
     Active Substance: BARNIDIPINE
     Indication: Hypertension
  34. BARNIDIPINE [Concomitant]
     Active Substance: BARNIDIPINE
     Route: 048
  35. BARNIDIPINE [Concomitant]
     Active Substance: BARNIDIPINE
     Route: 048
  36. BARNIDIPINE [Concomitant]
     Active Substance: BARNIDIPINE
  37. ALLOPURINOL [Concomitant]
     Active Substance: ALLOPURINOL
     Indication: Hyperuricaemia
     Dosage: 150 MILLIGRAM, QD
  38. ALLOPURINOL [Concomitant]
     Active Substance: ALLOPURINOL
     Dosage: 150 MILLIGRAM, QD
     Route: 048
  39. ALLOPURINOL [Concomitant]
     Active Substance: ALLOPURINOL
     Dosage: 150 MILLIGRAM, QD
     Route: 048
  40. ALLOPURINOL [Concomitant]
     Active Substance: ALLOPURINOL
     Dosage: 150 MILLIGRAM, QD
  41. BISOPROLOL [Concomitant]
     Active Substance: BISOPROLOL
     Indication: Atrial flutter
     Dosage: 5 MILLIGRAM, QD
  42. BISOPROLOL [Concomitant]
     Active Substance: BISOPROLOL
     Dosage: 5 MILLIGRAM, QD
     Route: 048
  43. BISOPROLOL [Concomitant]
     Active Substance: BISOPROLOL
     Dosage: 5 MILLIGRAM, QD
     Route: 048
  44. BISOPROLOL [Concomitant]
     Active Substance: BISOPROLOL
     Dosage: 5 MILLIGRAM, QD

REACTIONS (2)
  - Spontaneous haematoma [Recovered/Resolved]
  - Off label use [Recovered/Resolved]

NARRATIVE: CASE EVENT DATE: 20250118
